FAERS Safety Report 5898638-8 (Version None)
Quarter: 2008Q3

REPORT INFORMATION
  Report Type: 
  Country: None (occurrence: None)
  Receive Date: 20080925
  Receipt Date: 20080229
  Transmission Date: 20090109
  Serious: No
  Sender: FDA-Public Use
  Company Number: A0714344A

PATIENT
  Sex: Female

DRUGS (1)
  1. WELLBUTRIN XL [Suspect]
     Indication: DRUG USE FOR UNKNOWN INDICATION
     Dates: start: 20080201

REACTIONS (4)
  - ANXIETY [None]
  - CARDIAC DISORDER [None]
  - HEART RATE IRREGULAR [None]
  - NERVOUSNESS [None]
